FAERS Safety Report 22181036 (Version 1)
Quarter: 2023Q2

REPORT INFORMATION
  Report Type: Spontaneous
  Country: US (occurrence: US)
  Receive Date: 20230406
  Receipt Date: 20230406
  Transmission Date: 20230722
  Serious: No
  Sender: FDA-Public Use
  Company Number: US-GSKCCFUS-Case-01664198_AE-93931

PATIENT
  Sex: Female

DRUGS (1)
  1. BENLYSTA [Suspect]
     Active Substance: BELIMUMAB
     Indication: Product used for unknown indication
     Dosage: 200 MG/ML, WE(ONCE WEEKLY FOR OVER A YEAR)
     Route: 058
     Dates: start: 202104

REACTIONS (7)
  - Injection site vesicles [Recovered/Resolved]
  - Injection site irritation [Unknown]
  - Injection site erythema [Unknown]
  - Scar [Unknown]
  - Incorrect dose administered [Unknown]
  - Accidental exposure to product [Unknown]
  - Device difficult to use [Unknown]
